FAERS Safety Report 16084055 (Version 1)
Quarter: 2019Q1

REPORT INFORMATION
  Report Type: Spontaneous
  Country: US (occurrence: US)
  Receive Date: 20190318
  Receipt Date: 20190318
  Transmission Date: 20190418
  Serious: No
  Sender: FDA-Public Use
  Company Number: US-PFIZER INC-2019109785

PATIENT
  Age: 86 Year
  Sex: Female
  Weight: 68.48 kg

DRUGS (1)
  1. IBRANCE [Suspect]
     Active Substance: PALBOCICLIB
     Indication: BREAST CANCER METASTATIC
     Dosage: UNK, CYCLIC (DAY 1-21 Q 28 DAYS)
     Route: 048
     Dates: start: 201607, end: 2018

REACTIONS (1)
  - Neoplasm progression [Unknown]
